FAERS Safety Report 5889083-X (Version None)
Quarter: 2008Q3

REPORT INFORMATION
  Report Type: 
  Country: None (occurrence: None)
  Receive Date: 20080919
  Receipt Date: 20080513
  Transmission Date: 20090109
  Serious: No
  Sender: FDA-Public Use
  Company Number: US-BAYER-200823254NA

PATIENT
  Age: 35 Year
  Sex: Female
  Weight: 54 kg

DRUGS (2)
  1. AVELOX [Suspect]
     Indication: DRUG USE FOR UNKNOWN INDICATION
  2. CODEINE SUL TAB [Concomitant]
     Indication: COUGH
     Dates: start: 20071001

REACTIONS (4)
  - ANXIETY [None]
  - DISORIENTATION [None]
  - NIGHTMARE [None]
  - TREMOR [None]
